FAERS Safety Report 12991310 (Version 1)
Quarter: 2016Q4

REPORT INFORMATION
  Report Type: Report from Study
  Country: US (occurrence: US)
  Receive Date: 20161201
  Receipt Date: 20161201
  Transmission Date: 20170207
  Serious: No
  Sender: FDA-Public Use
  Company Number: PHEH2015US008087

PATIENT
  Sex: Female

DRUGS (1)
  1. GLEEVEC [Suspect]
     Active Substance: IMATINIB MESYLATE
     Indication: GASTRIC CANCER
     Dosage: 200 MG, QD
     Route: 048

REACTIONS (4)
  - Feeling abnormal [Unknown]
  - Drug intolerance [Unknown]
  - Rash [Unknown]
  - Diarrhoea [Unknown]
